FAERS Safety Report 9132925 (Version 1)
Quarter: 2013Q1

REPORT INFORMATION
  Report Type: Spontaneous
  Country: US (occurrence: US)
  Receive Date: 20130107
  Receipt Date: 20130107
  Transmission Date: 20140127
  Serious: Yes (Death)
  Sender: FDA-Public Use
  Company Number: US-ASTRAZENECA-2013SE00375

PATIENT
  Age: 30 Year
  Sex: Female

DRUGS (5)
  1. QUETIAPINE [Suspect]
     Route: 048
  2. ACETAMINOPHEN\HYDROCODONE [Suspect]
     Route: 048
  3. ALPRAZOLAM [Suspect]
     Route: 048
  4. CARISOPRODOL [Suspect]
     Route: 048
  5. PHENTERMINE [Suspect]
     Route: 048

REACTIONS (3)
  - Drug abuse [Fatal]
  - Toxicity to various agents [Fatal]
  - Cardio-respiratory arrest [Fatal]
